FAERS Safety Report 7157757-9 (Version None)
Quarter: 2010Q4

REPORT INFORMATION
  Report Type: 
  Country: None (occurrence: None)
  Receive Date: 20101214
  Receipt Date: 20100203
  Transmission Date: 20110411
  Serious: No
  Sender: FDA-Public Use
  Company Number: US-ASTRAZENECA-2010SE05126

PATIENT
  Sex: Female

DRUGS (2)
  1. ROSUVASTATIN [Suspect]
     Dosage: GENERIC
     Route: 048
  2. ROSUVASTATIN [Suspect]
     Route: 048

REACTIONS (1)
  - CHEST DISCOMFORT [None]
